FAERS Safety Report 12639809 (Version 2)
Quarter: 2016Q3

REPORT INFORMATION
  Report Type: Spontaneous
  Country: JP (occurrence: JP)
  Receive Date: 20160810
  Receipt Date: 20160912
  Transmission Date: 20161109
  Serious: Yes (Other)
  Sender: FDA-Public Use
  Company Number: JP-ROCHE-1811420

PATIENT
  Age: 53 Year
  Sex: Female
  Weight: 100 kg

DRUGS (12)
  1. ACTEMRA [Suspect]
     Active Substance: TOCILIZUMAB
     Indication: RHEUMATOID ARTHRITIS
     Route: 041
     Dates: start: 20160831
  2. RESPLEN [Concomitant]
     Active Substance: EPRAZINONE
     Indication: BRONCHITIS CHRONIC
     Route: 048
     Dates: start: 20090624
  3. ACTEMRA [Suspect]
     Active Substance: TOCILIZUMAB
     Indication: RHEUMATOID ARTHRITIS
     Route: 041
     Dates: start: 20141029, end: 20160629
  4. LOXONIN [Concomitant]
     Active Substance: LOXOPROFEN SODIUM
     Indication: RHEUMATOID ARTHRITIS
     Route: 048
     Dates: start: 20040115
  5. FLOMOX (JAPAN) [Concomitant]
     Active Substance: CEFCAPENE PIVOXIL HYDROCHLORIDE HYDRATE
     Indication: PROPHYLAXIS
     Dosage: DOSAGE IS UNCERTAIN. TAKEN AS NEEDED.
     Route: 048
     Dates: start: 20080716
  6. LYRICA [Concomitant]
     Active Substance: PREGABALIN
     Indication: VARICOSE VEIN
     Route: 048
  7. TERNELIN [Concomitant]
     Active Substance: TIZANIDINE
     Indication: SPONDYLOLISTHESIS
     Route: 048
     Dates: start: 20070614
  8. MOHRUS TAPE [Concomitant]
     Active Substance: KETOPROFEN
     Indication: SPONDYLOLISTHESIS
     Dosage: DOSAGE IS UNCERTAIN. TAKEN AS NEEDED.
     Route: 061
  9. ARAVA [Concomitant]
     Active Substance: LEFLUNOMIDE
     Indication: RHEUMATOID ARTHRITIS
     Dosage: FRACTIONATION DOSE UNCERTAIN FREQUENCY AND DOSE INTERVAL UNCERTAINTY
     Route: 048
     Dates: start: 20140319, end: 20141028
  10. ACTEMRA [Suspect]
     Active Substance: TOCILIZUMAB
     Indication: RHEUMATOID ARTHRITIS
     Route: 041
     Dates: start: 20130925, end: 20131218
  11. ARAVA [Concomitant]
     Active Substance: LEFLUNOMIDE
     Indication: RHEUMATOID ARTHRITIS
     Dosage: FRACTIONATION DOSE UNCERTAIN FREQUENCY AND DOSE INTERVAL UNCERTAINTY
     Route: 048
     Dates: start: 20070712, end: 20130903
  12. SELBEX [Concomitant]
     Active Substance: TEPRENONE
     Indication: ANALGESIC THERAPY
     Route: 048
     Dates: start: 20040115

REACTIONS (3)
  - Skin ulcer [Unknown]
  - Varicose vein ruptured [Unknown]
  - Infected skin ulcer [Recovered/Resolved]

NARRATIVE: CASE EVENT DATE: 201312
